FAERS Safety Report 9848321 (Version 1)
Quarter: 2013Q4

REPORT INFORMATION
  Report Type: Spontaneous
  Country: US (occurrence: None)
  Receive Date: 20131226
  Receipt Date: 20131226
  Transmission Date: 20140711
  Serious: Yes (Other)
  Sender: FDA-Public Use
  Company Number: PHEH2013US017145

PATIENT
  Age: 79 Year
  Sex: Female

DRUGS (4)
  1. ARCAPTA [Suspect]
     Indication: ASTHMA
  2. POTASSIUM (POTASSIUM) [Concomitant]
  3. SPIRIVA (TIOTROPIUM BROMIDE) (TIOTROPIUM BROMIDE) [Concomitant]
  4. METOPROLOL (METOPROLOL) [Concomitant]

REACTIONS (2)
  - Hypotension [None]
  - Muscle spasms [None]
